FAERS Safety Report 8299525-0 (Version None)
Quarter: 2012Q2

REPORT INFORMATION
  Report Type: 
  Country: None (occurrence: None)
  Receive Date: 20120419
  Receipt Date: 20120403
  Transmission Date: 20120825
  Serious: Yes (Other)
  Sender: FDA-Public Use
  Company Number: CHPA2012US008913

PATIENT
  Sex: Female

DRUGS (3)
  1. DRUG THERAPY NOS [Concomitant]
     Indication: HEADACHE
     Dosage: UNK
  2. IBUPROFEN (ADVIL) [Concomitant]
     Dosage: UNK
  3. EXCEDRIN (MIGRAINE) [Suspect]
     Indication: HEADACHE
     Dosage: 2 DF, QOD PRN
     Route: 048

REACTIONS (4)
  - ABDOMINAL DISCOMFORT [None]
  - HEADACHE [None]
  - DIARRHOEA [None]
  - VOMITING [None]
